FAERS Safety Report 21665003 (Version 1)
Quarter: 2022Q4

REPORT INFORMATION
  Report Type: Spontaneous
  Country: US (occurrence: US)
  Receive Date: 20221130
  Receipt Date: 20221130
  Transmission Date: 20230113
  Serious: No
  Sender: FDA-Public Use
  Company Number: US-009507513-2211USA008866

PATIENT
  Age: 11 Year
  Sex: Male

DRUGS (1)
  1. INTEGRILIN [Suspect]
     Active Substance: EPTIFIBATIDE
     Indication: Antiplatelet therapy
     Dosage: 90 MICROGRAM PER KILOGRAM

REACTIONS (1)
  - Product use issue [Unknown]
